FAERS Safety Report 7685258-8 (Version None)
Quarter: 2011Q3

REPORT INFORMATION
  Report Type: 
  Country: None (occurrence: None)
  Receive Date: 20110816
  Receipt Date: 20110804
  Transmission Date: 20111222
  Serious: Yes (Other)
  Sender: FDA-Public Use
  Company Number: US-ELI_LILLY_AND_COMPANY-US201108002064

PATIENT
  Age: 86 Year
  Sex: Female

DRUGS (5)
  1. SLEEP AID [Concomitant]
     Dosage: UNK
  2. HUMALOG [Suspect]
     Indication: DIABETES MELLITUS
     Dosage: UNK, PRN
  3. MORPHINE [Concomitant]
     Dosage: UNK
  4. ANTIHYPERTENSIVES [Concomitant]
     Dosage: UNK
  5. LASIX [Concomitant]
     Dosage: UNK

REACTIONS (2)
  - LUNG NEOPLASM MALIGNANT [None]
  - ASTHENIA [None]
